FAERS Safety Report 9366656 (Version 2)
Quarter: 2013Q3

REPORT INFORMATION
  Report Type: Spontaneous
  Country: AT (occurrence: AT)
  Receive Date: 20130625
  Receipt Date: 20130731
  Transmission Date: 20140515
  Serious: Yes (Other)
  Sender: FDA-Public Use
  Company Number: AT-MPIJNJ-2013-04733

PATIENT
  Sex: 0

DRUGS (4)
  1. VELCADE [Suspect]
     Indication: PLASMA CELL MYELOMA
     Dosage: 1.3 MG/M2, UNK
     Route: 058
  2. VELCADE [Suspect]
     Dosage: UNK
     Route: 042
  3. PREDNISOLONE                       /00016204/ [Concomitant]
     Indication: PLASMA CELL MYELOMA
     Route: 048
  4. MELPHALAN [Concomitant]
     Indication: PLASMA CELL MYELOMA
     Route: 048

REACTIONS (3)
  - Skin necrosis [Recovering/Resolving]
  - Injection site induration [Not Recovered/Not Resolved]
  - Erythema [Not Recovered/Not Resolved]
